FAERS Safety Report 8124141-0 (Version None)
Quarter: 2012Q1

REPORT INFORMATION
  Report Type: 
  Country: None (occurrence: None)
  Receive Date: 20120209
  Receipt Date: 20120201
  Transmission Date: 20120608
  Serious: Yes (Other)
  Sender: FDA-Public Use
  Company Number: US-BAYER-2011-028628

PATIENT
  Age: 24 Year
  Sex: Female
  Weight: 62.585 kg

DRUGS (7)
  1. PRILOSEC [Concomitant]
     Indication: GASTROOESOPHAGEAL REFLUX DISEASE
     Dosage: UNK
     Route: 048
     Dates: start: 20030101, end: 20090101
  2. METOCLOPRAMIDE [Concomitant]
     Dosage: 10 MG, UNK
     Route: 048
  3. YAZ [Suspect]
     Indication: CONTRACEPTION
     Dosage: UNK
     Dates: start: 20060901, end: 20071001
  4. YAZ [Suspect]
     Indication: PREMENSTRUAL SYNDROME
  5. DROSPIRENONE AND ETHINYL ESTRADIOL [Suspect]
     Indication: CONTRACEPTION
     Dosage: UNK
     Dates: start: 20081001, end: 20100401
  6. HYDROCODONE BITARTRATE AND ACETAMINOPHEN [Concomitant]
     Indication: ANALGESIC THERAPY
     Dosage: UNK UNK, PRN
     Route: 048
     Dates: start: 20030301, end: 20090601
  7. DROSPIRENONE AND ETHINYL ESTRADIOL [Suspect]
     Indication: PREMENSTRUAL SYNDROME

REACTIONS (6)
  - CHOLECYSTITIS CHRONIC [None]
  - ANXIETY [None]
  - GALLBLADDER INJURY [None]
  - INJURY [None]
  - PAIN [None]
  - EMOTIONAL DISTRESS [None]
